FAERS Safety Report 7482922-0 (Version None)
Quarter: 2011Q2

REPORT INFORMATION
  Report Type: 
  Country: None (occurrence: None)
  Receive Date: 20110516
  Receipt Date: 20110204
  Transmission Date: 20111010
  Serious: No
  Sender: FDA-Public Use
  Company Number: US-BAYER-2011-014575

PATIENT
  Sex: Male
  Weight: 102 kg

DRUGS (5)
  1. AVODART [Concomitant]
  2. ACTOPLUS MET [Concomitant]
  3. SERTRALINE HYDROCHLORIDE [Concomitant]
  4. ALEVE (CAPLET) [Suspect]
     Indication: ARTHRITIS
     Dosage: CONSUMER TOOK 2 TABLET TWICE FOR ONE MONTH. BOTTLE COUNT 200CT
     Route: 048
     Dates: start: 20110101, end: 20110204
  5. VYTORIN [Concomitant]

REACTIONS (1)
  - EPISTAXIS [None]
